FAERS Safety Report 19198214 (Version 1)
Quarter: 2021Q2

REPORT INFORMATION
  Report Type: Report from Study
  Country: CA (occurrence: CA)
  Receive Date: 20210430
  Receipt Date: 20210430
  Transmission Date: 20210717
  Serious: Yes (Death, Hospitalization)
  Sender: FDA-Public Use
  Company Number: CA-JNJFOC-20210307975

PATIENT
  Age: 66 Year
  Sex: Female

DRUGS (19)
  1. ROPINIROLE. [Concomitant]
     Active Substance: ROPINIROLE
  2. ADCIRCA [Concomitant]
     Active Substance: TADALAFIL
  3. SALINEX [MACROGOL;PROPYLENE GLYCOL;SODIUM CHLORIDE] [Concomitant]
     Active Substance: POLYETHYLENE GLYCOL\PROPYLENE GLYCOL\SODIUM CHLORIDE
     Indication: PRODUCT USED FOR UNKNOWN INDICATION
  4. TRACLEER [Suspect]
     Active Substance: BOSENTAN
     Indication: PULMONARY HYPERTENSION
     Route: 048
     Dates: start: 20180530, end: 20210421
  5. CLONAZEPAM. [Concomitant]
     Active Substance: CLONAZEPAM
  6. SALBUTAMOL [Concomitant]
     Active Substance: ALBUTEROL
  7. LACTOBACILLUS ACIDOPHILUS [Concomitant]
     Active Substance: LACTOBACILLUS ACIDOPHILUS
     Indication: PRODUCT USED FOR UNKNOWN INDICATION
  8. MORPHINE [Concomitant]
     Active Substance: MORPHINE
  9. SYMBICORT [Concomitant]
     Active Substance: BUDESONIDE\FORMOTEROL FUMARATE DIHYDRATE
  10. RHINARIS [SODIUM CHLORIDE] [Concomitant]
  11. CEFPROZIL. [Concomitant]
     Active Substance: CEFPROZIL
  12. RIZATRIPTANUM [Concomitant]
  13. ZANTAC [Concomitant]
     Active Substance: RANITIDINE HYDROCHLORIDE
     Indication: PRODUCT USED FOR UNKNOWN INDICATION
  14. PANTOPRAZOLE [Concomitant]
     Active Substance: PANTOPRAZOLE
  15. LASIX [Concomitant]
     Active Substance: FUROSEMIDE
  16. PREGABALIN. [Concomitant]
     Active Substance: PREGABALIN
  17. WARFARIN [Concomitant]
     Active Substance: WARFARIN
  18. OXYCODONE [Concomitant]
     Active Substance: OXYCODONE
  19. BUSCOPAN [Concomitant]
     Active Substance: BUTYLSCOPOLAMINE BROMIDE

REACTIONS (4)
  - Hospitalisation [Recovered/Resolved]
  - Off label use [Unknown]
  - Death [Fatal]
  - Product use in unapproved indication [Unknown]

NARRATIVE: CASE EVENT DATE: 20210228
